FAERS Safety Report 5483060-9 (Version None)
Quarter: 2007Q4

REPORT INFORMATION
  Report Type: 
  Country: None (occurrence: None)
  Receive Date: 20071011
  Receipt Date: 20070928
  Transmission Date: 20080405
  Serious: Yes (Hospitalization)
  Sender: FDA-Public Use
  Company Number: US-SHR-US-2006-011379

PATIENT
  Age: 35 Year
  Sex: Female
  Weight: 104.3 kg

DRUGS (21)
  1. BETAFERON [Suspect]
     Indication: RELAPSING-REMITTING MULTIPLE SCLEROSIS
     Dosage: UNK, EVERY 2D
     Route: 058
     Dates: start: 20050128, end: 20060509
  2. BENICAR [Concomitant]
     Indication: HYPERTENSION
     Dosage: 40 MG, 1X/DAY
     Route: 048
     Dates: start: 20050201, end: 20050308
  3. BENICAR [Concomitant]
     Dosage: 20 MG, 1X/DAY
     Route: 048
     Dates: start: 20050308, end: 20060511
  4. WELLBUTRIN - SLOW RELEASE [Concomitant]
     Indication: DEPRESSION
     Dosage: 150 MG, 1X/DAY
     Route: 048
     Dates: start: 20050212, end: 20050219
  5. WELLBUTRIN - SLOW RELEASE [Concomitant]
     Dosage: 300 MG, 1X/DAY
     Route: 048
     Dates: start: 20050220
  6. DEPO-PROVERA [Concomitant]
     Indication: CONTRACEPTION
     Dosage: 150 MG, Q3 MO
     Route: 030
     Dates: start: 20030101
  7. IBUPROFEN [Concomitant]
     Indication: PROPHYLAXIS
     Dosage: 200 MG, 1X/DAY
     Route: 048
     Dates: start: 20050128
  8. TYLENOL (CAPLET) [Concomitant]
     Dosage: UNK, AS REQ'D
  9. BENADRYL ^PFIZER WARNER-LAMBERT^ [Concomitant]
     Dosage: UNK, AS REQ'D
  10. MULTIVITAMIN ^LAPPE^ [Concomitant]
     Indication: VITAMIN SUPPLEMENTATION
     Dosage: 1 TAB(S), 1X/DAY
     Route: 048
     Dates: start: 20040101
  11. EXCEDRIN [Concomitant]
     Indication: HEADACHE
     Dosage: 1-2 TAB, AS REQ'D
     Route: 048
     Dates: start: 19940101
  12. NAPROXEN [Concomitant]
     Dosage: 550 MG, AS REQ'D
     Route: 048
     Dates: start: 20050808
  13. YASMIN [Concomitant]
     Dosage: 1 TAB(S), 1X/DAY
     Route: 048
     Dates: start: 20060101
  14. AMITRIPTYLINE HCL [Concomitant]
     Indication: INSOMNIA
     Dosage: 50 MG, BED T.
     Route: 048
     Dates: start: 20051110
  15. AMITRIPTYLINE HCL [Concomitant]
     Dosage: 25 MG, BED T.
     Route: 048
     Dates: start: 20051109, end: 20051110
  16. VALSARTAN [Concomitant]
     Indication: HYPERTENSION
     Dosage: 80 MG, 1X/DAY
     Route: 048
     Dates: start: 20030101, end: 20050201
  17. SIBUTRAMINE [Concomitant]
     Indication: OBESITY
     Dosage: 15 MG, 1X/DAY
     Route: 048
     Dates: start: 20040101, end: 20050201
  18. SULFAMETHOXAZOLE W/TRIMETHOPRIM [Concomitant]
     Dosage: 40/200 MG BID
     Route: 048
     Dates: start: 20050812, end: 20050819
  19. SULFAMETHOXAZOLE W/TRIMETHOPRIM [Concomitant]
     Dosage: 40/200 MG BID
     Route: 048
     Dates: start: 20051109
  20. SULFAMETHOXAZOLE W/TRIMETHOPRIM [Concomitant]
     Dosage: 40/200 MG BID
     Route: 048
     Dates: start: 20060213
  21. LEVAQUIN [Concomitant]
     Dosage: 500 MG, 1X/DAY
     Route: 048
     Dates: start: 20060119, end: 20060128

REACTIONS (4)
  - HYPERHIDROSIS [None]
  - HYPERTHYROIDISM [None]
  - NAUSEA [None]
  - PRESYNCOPE [None]
